FAERS Safety Report 7820016-2 (Version None)
Quarter: 2011Q4

REPORT INFORMATION
  Report Type: 
  Country: None (occurrence: None)
  Receive Date: 20111018
  Receipt Date: 20111007
  Transmission Date: 20120403
  Serious: Yes (Hospitalization)
  Sender: FDA-Public Use
  Company Number: PHHO2011FR15997

PATIENT
  Sex: Male
  Weight: 102 kg

DRUGS (9)
  1. NEBIVOLOL HCL [Concomitant]
     Indication: HYPERTENSION
     Dosage: UNK
     Dates: start: 20070101
  2. ACETAMINOPHEN AND TRAMADOL HCL [Concomitant]
     Indication: ANALGESIC THERAPY
     Dosage: UNK
     Dates: start: 20090101, end: 20101124
  3. TASIGNA [Suspect]
     Dosage: NO TREATMENT RECEIVED
     Dates: start: 20110917, end: 20110922
  4. CELLUVISC [Concomitant]
     Indication: DRY EYE
     Dosage: UNK
     Dates: start: 19580101
  5. TASIGNA [Suspect]
     Indication: CHRONIC MYELOID LEUKAEMIA
     Dosage: 600 MG, QD
     Dates: start: 20101124, end: 20110916
  6. IRBESARTAN [Concomitant]
     Indication: HYPERTENSION
     Dosage: UNK
     Dates: start: 20100101
  7. PREVISCAN [Concomitant]
     Indication: PROPHYLAXIS
     Dosage: UNK
     Dates: start: 20070101
  8. FLUTIBACT [Concomitant]
     Indication: DRY EYE
     Dosage: UNK
     Dates: start: 19580101
  9. TASIGNA [Suspect]
     Dosage: 600 MG, QD
     Route: 048
     Dates: start: 20110923

REACTIONS (2)
  - CARDIAC VALVE DISEASE [None]
  - ATRIAL FLUTTER [None]
